FAERS Safety Report 5809206-8 (Version None)
Quarter: 2008Q3

REPORT INFORMATION
  Report Type: 
  Country: None (occurrence: None)
  Receive Date: 20080714
  Receipt Date: 20080709
  Transmission Date: 20090109
  Serious: Yes (Death, Hospitalization)
  Sender: FDA-Public Use
  Company Number: US-WYE-H01559607

PATIENT
  Age: 59 Year
  Sex: Male

DRUGS (12)
  1. TORISEL [Suspect]
     Indication: GLIOBLASTOMA MULTIFORME
     Route: 042
     Dates: start: 20070413, end: 20070101
  2. TORISEL [Suspect]
     Dosage: 75 MG DAYS 1,8, 15, AND 22
     Route: 042
     Dates: end: 20071101
  3. DEXAMETHASONE [Suspect]
     Indication: GLIOBLASTOMA MULTIFORME
     Dosage: DOSE AND DATES OF THERAPY WERE NOT PROVIDED
     Route: 065
  4. LEXAPRO [Concomitant]
     Dosage: DOSE AND DATES OF THERAPY WERE NOT PROVIDED
     Route: 065
  5. POTASSIUM CHLORIDE [Concomitant]
     Dosage: DOSE AND DATES OF THERAPY WERE NOT PROVIDED
     Route: 065
  6. DIOVAN [Concomitant]
     Dosage: DOSE AND DATES OF THERAPY WERE NOT PROVIDED
     Route: 065
  7. SINGULAIR [Concomitant]
     Dosage: DOSE AND DATES OF THERAPY WERE NOT PROVIDED
     Route: 065
  8. SIMVASTATIN [Concomitant]
     Dosage: DOSE AND DATES OF THERAPY WAS NOT PROVIDED
     Route: 065
  9. ASCORBIC ACID [Concomitant]
     Dosage: DOSE AND DATES OF THERAPY WAS NOT PROVIDED
     Route: 065
  10. TEMOZOLOMIDE [Suspect]
     Indication: GLIOBLASTOMA MULTIFORME
     Dosage: 4 CYCLES;  75 MG 5 DAYS/MONTH; DOSE UNKNOWN
     Route: 048
  11. TEMOZOLOMIDE [Suspect]
     Dosage: 200 MG/M2 DAYS 1-5 OF A 28 DAY CYCLE ( 6 CYCLE MAXIMUM)
     Dates: end: 20071022
  12. FUROSEMIDE [Concomitant]
     Dosage: DOSE AND DATES OF THERAPY WERE NOT PROVIDED
     Route: 065

REACTIONS (5)
  - HAEMOPHILUS SEPSIS [None]
  - HYPOTENSION [None]
  - PNEUMONIA HAEMOPHILUS [None]
  - PYURIA [None]
  - SEPTIC SHOCK [None]
